FAERS Safety Report 25234935 (Version 5)
Quarter: 2025Q2

REPORT INFORMATION
  Report Type: Spontaneous
  Country: US (occurrence: US)
  Receive Date: 20250424
  Receipt Date: 20250527
  Transmission Date: 20250717
  Serious: No
  Sender: PFIZER
  Company Number: US-PFIZER INC-202500075225

PATIENT
  Age: 74 Year
  Sex: Female
  Weight: 65.77 kg

DRUGS (5)
  1. PREMARIN [Suspect]
     Active Substance: ESTROGENS, CONJUGATED
     Indication: Vulvovaginal dryness
     Dosage: 0.5 G, 2X/WEEK
     Route: 067
  2. ESTRADIOL [Concomitant]
     Active Substance: ESTRADIOL
  3. CRESTOR [Concomitant]
     Active Substance: ROSUVASTATIN CALCIUM
     Indication: Blood cholesterol abnormal
  4. MELOXICAM [Concomitant]
     Active Substance: MELOXICAM
  5. GABAPENTIN [Concomitant]
     Active Substance: GABAPENTIN

REACTIONS (4)
  - Drug ineffective [Unknown]
  - Device delivery system issue [Unknown]
  - Product physical consistency issue [Unknown]
  - Expired product administered [Unknown]
